FAERS Safety Report 10275259 (Version 1)
Quarter: 2014Q3

REPORT INFORMATION
  Report Type: Spontaneous
  Country: IT (occurrence: IT)
  Receive Date: 20140703
  Receipt Date: 20140703
  Transmission Date: 20150326
  Serious: Yes (Other)
  Sender: FDA-Public Use
  Company Number: IT-RANBAXY-2014RR-82994

PATIENT
  Age: 22 Year
  Sex: Female

DRUGS (2)
  1. LISOMUCIL (CARBOCISTEINE) [Suspect]
     Active Substance: CARBOCYSTEINE
     Indication: COUGH
     Dosage: 1 DF, PRN
     Route: 048
     Dates: start: 20140613, end: 20140616
  2. PARACETAMOL [Suspect]
     Active Substance: ACETAMINOPHEN
     Indication: PYREXIA
     Dosage: 500 MG, PRN
     Route: 048
     Dates: start: 20140613, end: 20140616

REACTIONS (2)
  - Face oedema [Recovering/Resolving]
  - Rash generalised [Recovering/Resolving]

NARRATIVE: CASE EVENT DATE: 20140616
